FAERS Safety Report 4436548-3 (Version None)
Quarter: 2004Q3

REPORT INFORMATION
  Report Type: 
  Country: None (occurrence: None)
  Receive Date: 20040830
  Receipt Date: 20040622
  Transmission Date: 20050211
  Serious: Yes (Other)
  Sender: FDA-Public Use
  Company Number: US-BRISTOL-MYERS SQUIBB COMPANY-12622155

PATIENT
  Age: 59 Year
  Sex: Female

DRUGS (1)
  1. ABILIFY [Suspect]
     Route: 048

REACTIONS (8)
  - BLOOD POTASSIUM DECREASED [None]
  - DIZZINESS [None]
  - HEAT STROKE [None]
  - MYOCARDIAL INFARCTION [None]
  - NAUSEA [None]
  - RASH [None]
  - VOMITING [None]
  - WEIGHT DECREASED [None]
